FAERS Safety Report 8543168-8 (Version None)
Quarter: 2012Q3

REPORT INFORMATION
  Report Type: 
  Country: None (occurrence: None)
  Receive Date: 20120727
  Receipt Date: 20120718
  Transmission Date: 20120928
  Serious: Yes (Other)
  Sender: FDA-Public Use
  Company Number: US-MSD-1207USA007748

PATIENT

DRUGS (3)
  1. PEG-INTRON [Suspect]
     Indication: HEPATITIS C
     Dosage: UNK
     Dates: start: 20120131
  2. REBETOL [Suspect]
     Indication: HEPATITIS C
     Dosage: UNK
     Dates: start: 20120131
  3. VICTRELIS [Suspect]
     Indication: HEPATITIS C
     Dosage: UNK
     Dates: start: 20120228

REACTIONS (13)
  - NAUSEA [None]
  - VOMITING [None]
  - ANAEMIA [None]
  - OROPHARYNGEAL PAIN [None]
  - ANXIETY [None]
  - RETCHING [None]
  - WEIGHT INCREASED [None]
  - PYREXIA [None]
  - CHEST DISCOMFORT [None]
  - DRY SKIN [None]
  - BEDRIDDEN [None]
  - DEHYDRATION [None]
  - THINKING ABNORMAL [None]
